FAERS Safety Report 7469834-3 (Version None)
Quarter: 2011Q2

REPORT INFORMATION
  Report Type: 
  Country: None (occurrence: None)
  Receive Date: 20110510
  Receipt Date: 20101029
  Transmission Date: 20111010
  Serious: Yes (Hospitalization)
  Sender: FDA-Public Use
  Company Number: US-ROCHE-725424

PATIENT
  Sex: Female
  Weight: 86.2 kg

DRUGS (5)
  1. MYCOPHENOLATE MOFETIL [Suspect]
     Dosage: DATE OF LAST DOSE PRIOR TO SAE: MAY 2010
     Route: 048
     Dates: start: 20090416
  2. OCRELIZUMAB [Suspect]
     Indication: SYSTEMIC LUPUS ERYTHEMATOSUS
     Dosage: LAST DOSE PRIOR TO SAE: 05 AUGUST 2009
     Route: 042
     Dates: start: 20090413
  3. PREDNISOLONE [Suspect]
     Indication: SYSTEMIC LUPUS ERYTHEMATOSUS
     Dosage: DATE OF LAST DOSE PRIOR TO SAE: MAY 2010
     Route: 048
     Dates: start: 20080601
  4. PLAQUENIL [Concomitant]
     Dates: start: 20081120, end: 20100801
  5. MULTIVITAMIN NOS [Concomitant]
     Dosage: DRUG NAME: MULTIVITAMIN
     Dates: start: 20090413

REACTIONS (1)
  - OVARIAN MASS [None]
